FAERS Safety Report 20988057 (Version 1)
Quarter: 2022Q2

REPORT INFORMATION
  Report Type: Spontaneous
  Country: US (occurrence: None)
  Receive Date: 20220620
  Receipt Date: 20220620
  Transmission Date: 20220721
  Serious: Yes (Other)
  Sender: FDA-Public Use
  Company Number: None

PATIENT
  Age: 39 Year
  Sex: Male
  Weight: 67.5 kg

DRUGS (7)
  1. MIRTAZAPINE [Suspect]
     Active Substance: MIRTAZAPINE
  2. MIRTAZAPINE [Concomitant]
     Active Substance: MIRTAZAPINE
  3. NAPROXEN SODIUM [Concomitant]
     Active Substance: NAPROXEN SODIUM
  4. ADDERALL [Concomitant]
     Active Substance: AMPHETAMINE ASPARTATE\AMPHETAMINE SULFATE\DEXTROAMPHETAMINE SACCHARATE\DEXTROAMPHETAMINE SULFATE
  5. Risperidone Alprazolam [Concomitant]
  6. VITAMINS [Concomitant]
     Active Substance: VITAMINS
  7. HERBALS\TURMERIC [Concomitant]
     Active Substance: HERBALS\TURMERIC

REACTIONS (1)
  - Headache [None]

NARRATIVE: CASE EVENT DATE: 20220619
